FAERS Safety Report 5134328-7 (Version None)
Quarter: 2006Q4

REPORT INFORMATION
  Report Type: 
  Country: None (occurrence: None)
  Receive Date: 20060831
  Receipt Date: 20060607
  Transmission Date: 20070319
  Serious: No
  Sender: FDA-Public Use
  Company Number: 2006-BP-06466BP

PATIENT
  Sex: Male

DRUGS (6)
  1. SPIRIVA [Suspect]
     Indication: CHRONIC OBSTRUCTIVE PULMONARY DISEASE
     Dosage: 18 MCG (18 MCG),IH
     Dates: start: 20030101, end: 20060607
  2. ZITHROMAX [Concomitant]
  3. TOPROL-XL [Concomitant]
  4. METHOTREXATE [Concomitant]
  5. ALBUTEROL [Concomitant]
  6. NEURONTIN [Concomitant]

REACTIONS (2)
  - CRYING [None]
  - PYREXIA [None]
